FAERS Safety Report 5134499-2 (Version None)
Quarter: 2006Q4

REPORT INFORMATION
  Report Type: 
  Country: None (occurrence: None)
  Receive Date: 20061023
  Receipt Date: 20061023
  Transmission Date: 20070319
  Serious: No
  Sender: FDA-Public Use
  Company Number: None

PATIENT
  Age: 58 Year
  Sex: Female
  Weight: 37.195 kg

DRUGS (1)
  1. ZITHROMAX [Suspect]
     Indication: PNEUMONIA
     Dosage: 500MG IV X 1
     Route: 042
     Dates: start: 20060928

REACTIONS (2)
  - INJECTION SITE ERYTHEMA [None]
  - RASH MACULAR [None]
